FAERS Safety Report 21908704 (Version 1)
Quarter: 2023Q1

REPORT INFORMATION
  Report Type: Spontaneous
  Country: US (occurrence: None)
  Receive Date: 20230124
  Receipt Date: 20230124
  Transmission Date: 20230417
  Serious: Yes (Other)
  Sender: FDA-Public Use
  Company Number: None

PATIENT
  Age: 60 Year
  Sex: Female

DRUGS (20)
  1. AMBRISENTAN [Suspect]
     Active Substance: AMBRISENTAN
     Indication: Pulmonary arterial hypertension
     Dosage: FREQUENCY : DAILY;?
     Route: 048
     Dates: start: 20130418
  2. SILDENAFIL [Concomitant]
     Active Substance: SILDENAFIL
  3. VELETRI [Suspect]
     Active Substance: EPOPROSTENOL
  4. VELETRI [Concomitant]
     Active Substance: EPOPROSTENOL
  5. oxygen intranasal [Concomitant]
  6. POTASSIUM CHLORIDE [Concomitant]
     Active Substance: POTASSIUM CHLORIDE
  7. ONDANSETRON [Concomitant]
  8. PERCOCET [Concomitant]
     Active Substance: ACETAMINOPHEN\OXYCODONE HYDROCHLORIDE
  9. TEMAZEPAM [Concomitant]
     Active Substance: TEMAZEPAM
  10. BUPROPION [Concomitant]
     Active Substance: BUPROPION
  11. SERTRALINE [Concomitant]
     Active Substance: SERTRALINE HYDROCHLORIDE
  12. ALBUTEROL SULFATE [Concomitant]
     Active Substance: ALBUTEROL SULFATE
  13. BACLOFEN [Concomitant]
     Active Substance: BACLOFEN
  14. FAMOTIDINE [Concomitant]
     Active Substance: FAMOTIDINE
  15. FUROSEMIDE [Concomitant]
     Active Substance: FUROSEMIDE
  16. PEPCID AC [Concomitant]
     Active Substance: FAMOTIDINE
  17. DIGOXIN [Concomitant]
     Active Substance: DIGOXIN
  18. narcon [Concomitant]
  19. refresh optive advanced opht drop [Concomitant]
  20. FLONASE [Concomitant]
     Active Substance: FLUTICASONE PROPIONATE

REACTIONS (2)
  - Diarrhoea [None]
  - Urinary tract infection [None]

NARRATIVE: CASE EVENT DATE: 20221225
